FAERS Safety Report 9274226 (Version 1)
Quarter: 2013Q2

REPORT INFORMATION
  Report Type: Spontaneous
  Country: US (occurrence: US)
  Receive Date: 20130506
  Receipt Date: 20130506
  Transmission Date: 20140414
  Serious: No
  Sender: FDA-Public Use
  Company Number: US-AMGEN-USASP2013030307

PATIENT
  Age: 69 Year
  Sex: Male

DRUGS (6)
  1. ENBREL [Suspect]
     Indication: PSORIATIC ARTHROPATHY
     Dosage: 50 MG,  EVERY 5 DAYS
  2. FORTEO [Concomitant]
     Dosage: UNK
  3. ASPIRIN [Concomitant]
     Dosage: 82 MG, UNK
  4. VITAMIN C                          /00008001/ [Concomitant]
     Dosage: UNK
  5. VITAMIN D /00107901/ [Concomitant]
     Dosage: UNK
  6. PRAVACHOL [Concomitant]
     Dosage: UNK

REACTIONS (5)
  - Osteoarthritis [Recovering/Resolving]
  - Dyspnoea [Unknown]
  - Gastrooesophageal reflux disease [Unknown]
  - Allergy to animal [Unknown]
  - Bronchitis [Recovered/Resolved]
